FAERS Safety Report 15854914 (Version 2)
Quarter: 2019Q1

REPORT INFORMATION
  Report Type: Spontaneous
  Country: US (occurrence: US)
  Receive Date: 20190122
  Receipt Date: 20190322
  Transmission Date: 20190417
  Serious: Yes (Other)
  Sender: FDA-Public Use
  Company Number: US-SUNOVION-2019SUN000166

PATIENT
  Age: 65 Year
  Sex: Female

DRUGS (2)
  1. VALIUM NOVUM [Suspect]
     Active Substance: DIAZEPAM
     Dosage: UNK
     Route: 065
  2. LATUDA [Suspect]
     Active Substance: LURASIDONE HYDROCHLORIDE
     Dosage: 120 MG, QD
     Route: 048
     Dates: start: 20160427, end: 20190108

REACTIONS (6)
  - Swollen tongue [Recovering/Resolving]
  - Urticaria [Recovering/Resolving]
  - Chapped lips [Recovering/Resolving]
  - Rash [Recovering/Resolving]
  - Swelling face [Recovering/Resolving]
  - Angioedema [Recovering/Resolving]

NARRATIVE: CASE EVENT DATE: 20181223
